FAERS Safety Report 17884328 (Version 4)
Quarter: 2021Q2

REPORT INFORMATION
  Report Type: Spontaneous
  Country: FR (occurrence: FR)
  Receive Date: 20200611
  Receipt Date: 20210420
  Transmission Date: 20210717
  Serious: Yes (Other)
  Sender: FDA-Public Use
  Company Number: NVSC2020FR161572

PATIENT
  Age: 69 Year
  Sex: Female
  Weight: 48 kg

DRUGS (3)
  1. SANDOSTATINE L.P. [Suspect]
     Active Substance: OCTREOTIDE ACETATE
     Indication: NEUROENDOCRINE TUMOUR
     Dosage: 30 MG, QMO (INJECTION)
     Route: 065
     Dates: start: 201504, end: 202006
  2. SANDOSTATINE L.P. [Suspect]
     Active Substance: OCTREOTIDE ACETATE
  3. SANDOSTATINE L.P. [Suspect]
     Active Substance: OCTREOTIDE ACETATE
     Indication: METASTASES TO LIVER

REACTIONS (6)
  - Metastasis [Unknown]
  - Carcinoid syndrome [Unknown]
  - Needle issue [Unknown]
  - Flushing [Unknown]
  - Injection site pain [Unknown]
  - Underdose [Unknown]

NARRATIVE: CASE EVENT DATE: 202005
